FAERS Safety Report 12884760 (Version 4)
Quarter: 2017Q1

REPORT INFORMATION
  Report Type: Spontaneous
  Country: AE (occurrence: AE)
  Receive Date: 20161026
  Receipt Date: 20170209
  Transmission Date: 20170428
  Serious: Yes (Death, Congenital Anomaly)
  Sender: FDA-Public Use
  Company Number: AE-AMGEN-ARESP2016146470

PATIENT

DRUGS (2)
  1. ENBREL [Suspect]
     Active Substance: ETANERCEPT
     Indication: EXPOSURE DURING PREGNANCY
     Dosage: 50 MG, WEEKLY
     Route: 064
     Dates: start: 20160926
  2. ARAVA [Suspect]
     Active Substance: LEFLUNOMIDE
     Indication: EXPOSURE DURING PREGNANCY
     Dosage: 20 MG, 1X/DAY
     Route: 064
     Dates: start: 2014

REACTIONS (2)
  - Foetal exposure during pregnancy [Fatal]
  - Congenital anomaly [Fatal]
